FAERS Safety Report 7288839-9 (Version None)
Quarter: 2011Q1

REPORT INFORMATION
  Report Type: 
  Country: None (occurrence: None)
  Receive Date: 20110211
  Receipt Date: 20110202
  Transmission Date: 20110831
  Serious: Yes (Hospitalization)
  Sender: FDA-Public Use
  Company Number: CA-JNJFOC-20110201665

PATIENT
  Sex: Female
  Weight: 38 kg

DRUGS (9)
  1. ACTONEL [Concomitant]
     Dosage: WEEKLY
     Route: 065
  2. REMICADE [Suspect]
     Indication: CROHN'S DISEASE
     Route: 042
  3. REMICADE [Suspect]
     Route: 042
  4. PANCRELIPASE [Concomitant]
     Route: 065
  5. FOLIC ACID [Concomitant]
  6. OMEPRAZOLE [Concomitant]
     Route: 065
  7. METHOTREXATE [Concomitant]
  8. SYNTHROID [Concomitant]
     Route: 065
  9. VITAMIN B-12 [Concomitant]
     Dosage: MONTHLY
     Route: 065

REACTIONS (1)
  - PANCREATITIS RELAPSING [None]
